FAERS Safety Report 21168405 (Version 1)
Quarter: 2022Q3

REPORT INFORMATION
  Report Type: Spontaneous
  Country: US (occurrence: US)
  Receive Date: 20220803
  Receipt Date: 20220803
  Transmission Date: 20221026
  Serious: Yes (Other)
  Sender: FDA-Public Use
  Company Number: US-IGSA-BIG0019775

PATIENT
  Age: 14 Year
  Sex: Female

DRUGS (7)
  1. HUMAN IMMUNOGLOBULIN G [Suspect]
     Active Substance: HUMAN IMMUNOGLOBULIN G
     Indication: Parvovirus B19 infection
     Dosage: 0.5 MILLIGRAM/KILOGRAM, UNKNOWN
     Route: 042
  2. BASILIXIMAB [Concomitant]
     Active Substance: BASILIXIMAB
  3. TACROLIMUS [Concomitant]
     Active Substance: TACROLIMUS
  4. PREDNISONE [Concomitant]
     Active Substance: PREDNISONE
     Indication: Adverse drug reaction
     Dosage: 0.25 MILLIGRAM/KILOGRAM, QD
  5. CEFEPIME [Concomitant]
     Active Substance: CEFEPIME HYDROCHLORIDE
     Indication: Pneumonia
     Dosage: UNK
     Route: 042
  6. FLUCONAZOLE [Concomitant]
     Active Substance: FLUCONAZOLE
     Indication: Pneumonia
     Dosage: UNK
     Route: 048
  7. NITAZOXANIDE [Concomitant]
     Active Substance: NITAZOXANIDE
     Indication: Cryptosporidiosis infection

REACTIONS (3)
  - Vision blurred [Recovered/Resolved]
  - Monoplegia [Recovered/Resolved]
  - Wheezing [Recovered/Resolved]
